FAERS Safety Report 17241970 (Version 4)
Quarter: 2020Q3

REPORT INFORMATION
  Report Type: Report from Study
  Country: CL (occurrence: CL)
  Receive Date: 20200107
  Receipt Date: 20200711
  Transmission Date: 20201102
  Serious: Yes (Hospitalization, Other)
  Sender: FDA-Public Use
  Company Number: NVSC2019CL085587

PATIENT
  Sex: Female

DRUGS (4)
  1. COSENTYX [Suspect]
     Active Substance: SECUKINUMAB
     Indication: PSORIATIC ARTHROPATHY
     Dosage: 300 MG, QMO
     Route: 058
     Dates: start: 20191029
  2. COSENTYX [Suspect]
     Active Substance: SECUKINUMAB
     Dosage: 300 MG, QMO
     Route: 058
     Dates: end: 20191202
  3. BETAMETHASONE. [Concomitant]
     Active Substance: BETAMETHASONE
     Indication: PSORIATIC ARTHROPATHY
     Route: 065
  4. METHOTREXATE. [Concomitant]
     Active Substance: METHOTREXATE
     Indication: PSORIATIC ARTHROPATHY
     Route: 065

REACTIONS (10)
  - Dizziness [Not Recovered/Not Resolved]
  - C-reactive protein increased [Unknown]
  - Drug ineffective [Unknown]
  - Renal failure [Unknown]
  - Pain in extremity [Not Recovered/Not Resolved]
  - Physical deconditioning [Recovered/Resolved with Sequelae]
  - Dyspepsia [Recovering/Resolving]
  - Psoriatic arthropathy [Not Recovered/Not Resolved]
  - Inflammation [Not Recovered/Not Resolved]
  - Blood potassium decreased [Unknown]
